FAERS Safety Report 8049292-0 (Version None)
Quarter: 2012Q1

REPORT INFORMATION
  Report Type: 
  Country: None (occurrence: None)
  Receive Date: 20120117
  Receipt Date: 20120113
  Transmission Date: 20120608
  Serious: Yes (Other)
  Sender: FDA-Public Use
  Company Number: AU-PFIZER INC-2012010800

PATIENT
  Age: 68 Year
  Sex: Male

DRUGS (2)
  1. HEPARIN SODIUM [Suspect]
     Dosage: 200 IU/KG
     Route: 040
  2. HEPARIN SODIUM [Suspect]
     Dosage: 50 IU/KG
     Route: 040

REACTIONS (1)
  - HYPERKALAEMIA [None]
